FAERS Safety Report 10775642 (Version 1)
Quarter: 2015Q1

REPORT INFORMATION
  Report Type: Spontaneous
  Country: CA (occurrence: None)
  Receive Date: 20150205
  Receipt Date: 20150205
  Transmission Date: 20150721
  Serious: Yes (Hospitalization)
  Sender: FDA-Public Use
  Company Number: 2722953

PATIENT
  Age: 70 Year
  Sex: Male

DRUGS (1)
  1. HEPARIN SODIUM. [Suspect]
     Active Substance: HEPARIN SODIUM
     Indication: AORTIC ANEURYSM
     Route: 042

REACTIONS (6)
  - Graft thrombosis [None]
  - Heparin-induced thrombocytopenia [None]
  - Intestinal ischaemia [None]
  - Mesenteric artery thrombosis [None]
  - Diarrhoea haemorrhagic [None]
  - Post procedural complication [None]
